FAERS Safety Report 25775283 (Version 4)
Quarter: 2025Q3

REPORT INFORMATION
  Report Type: Report from Study
  Country: US (occurrence: US)
  Receive Date: 20250909
  Receipt Date: 20250918
  Transmission Date: 20251021
  Serious: Yes (Other)
  Sender: ABBVIE
  Company Number: US-ABBVIE-6445574

PATIENT
  Age: 81 Year
  Sex: Male
  Weight: 70.306 kg

DRUGS (1)
  1. VYALEV [Suspect]
     Active Substance: FOSCARBIDOPA\FOSLEVODOPA
     Indication: Parkinson^s disease
     Route: 058
     Dates: start: 20250728, end: 20250902

REACTIONS (9)
  - Aphasia [Not Recovered/Not Resolved]
  - On and off phenomenon [Unknown]
  - Freezing phenomenon [Unknown]
  - Unresponsive to stimuli [Unknown]
  - Movement disorder [Not Recovered/Not Resolved]
  - Device connection issue [Unknown]
  - Tremor [Unknown]
  - Unintentional medical device removal [Not Recovered/Not Resolved]
  - Device issue [Unknown]

NARRATIVE: CASE EVENT DATE: 20250101
